FAERS Safety Report 20461494 (Version 1)
Quarter: 2022Q1

REPORT INFORMATION
  Report Type: Spontaneous
  Country: US (occurrence: US)
  Receive Date: 20220211
  Receipt Date: 20220211
  Transmission Date: 20220424
  Serious: No
  Sender: FDA-Public Use
  Company Number: US-PFIZER INC-2016337912

PATIENT
  Age: 85 Year

DRUGS (3)
  1. PREMARIN [Suspect]
     Active Substance: ESTROGENS, CONJUGATED
     Dosage: 0.625 MG, 1X/DAY
  2. TIMOLOL [Concomitant]
     Active Substance: TIMOLOL
     Dosage: 1 DF, 1X/DAY, [1 DROP EACH EYE IN AM]
     Route: 047
  3. CALCIUM [Concomitant]
     Active Substance: CALCIUM
     Dosage: UNK

REACTIONS (1)
  - Throat tightness [Unknown]
